FAERS Safety Report 4527306-X (Version None)
Quarter: 2004Q4

REPORT INFORMATION
  Report Type: 
  Country: None (occurrence: None)
  Receive Date: 20041130
  Receipt Date: 20041004
  Transmission Date: 20050328
  Serious: No
  Sender: FDA-Public Use
  Company Number: FABR-10808

PATIENT
  Age: 40 Year
  Sex: Female
  Weight: 88.6 kg

DRUGS (4)
  1. FABRAZYME [Suspect]
     Indication: FABRY'S DISEASE
     Dosage: 70 MG Q2WKS IV
     Route: 042
     Dates: start: 20040430
  2. SYNTHROID [Concomitant]
  3. TYLENOL (CAPLET) [Concomitant]
  4. CENESTIN [Concomitant]

REACTIONS (2)
  - ANXIETY [None]
  - CHEST DISCOMFORT [None]
